FAERS Safety Report 6422251-7 (Version None)
Quarter: 2009Q4

REPORT INFORMATION
  Report Type: 
  Country: None (occurrence: None)
  Receive Date: 20091030
  Receipt Date: 20091026
  Transmission Date: 20100525
  Serious: Yes (Hospitalization, Other)
  Sender: FDA-Public Use
  Company Number: GB-TEVA-210157ISR

PATIENT
  Age: 45 Year
  Sex: Male

DRUGS (2)
  1. PHENYTOIN [Suspect]
  2. BEVACIZUMAB [Suspect]
     Indication: GLIOBLASTOMA MULTIFORME
     Route: 042
     Dates: start: 20090721

REACTIONS (7)
  - BODY TEMPERATURE INCREASED [None]
  - CONFUSIONAL STATE [None]
  - CYTOKINE STORM [None]
  - DEEP VEIN THROMBOSIS [None]
  - DELIRIUM [None]
  - IMPETIGO [None]
  - PETECHIAE [None]
